FAERS Safety Report 17228667 (Version 2)
Quarter: 2020Q1

REPORT INFORMATION
  Report Type: Spontaneous
  Country: ES (occurrence: ES)
  Receive Date: 20200103
  Receipt Date: 20200106
  Transmission Date: 20200409
  Serious: Yes (Hospitalization, Other)
  Sender: FDA-Public Use
  Company Number: ES-PFIZER INC-2019563102

PATIENT
  Age: 78 Year
  Sex: Female

DRUGS (12)
  1. OMEPRAZOL PENSA [OMEPRAZOLE MAGNESIUM] [Concomitant]
     Dosage: 20 MG, 2X/DAY (Q12H )
     Route: 048
     Dates: start: 20120821
  2. TRINISPRAY [Concomitant]
     Dosage: 400 UG, 1X/DAY(1 200 DOSE SPRAY CONTAINER)
     Route: 060
     Dates: start: 20120821
  3. DUNA [Concomitant]
     Dosage: 2.5 MG, 1X/DAY
     Route: 048
     Dates: start: 20190121
  4. TRANGOREX [Suspect]
     Active Substance: AMIODARONE HYDROCHLORIDE
     Dosage: 200 MG, 1X/DAY
     Route: 048
     Dates: start: 20181019, end: 20191113
  5. ATORVASTATINA [ATORVASTATIN] [Concomitant]
     Active Substance: ATORVASTATIN
     Dosage: 40 MG, 1X/DAY
     Route: 048
     Dates: start: 20150709
  6. XARELTO [Concomitant]
     Active Substance: RIVAROXABAN
     Dosage: 15 MG, 1X/DAY
     Route: 048
     Dates: start: 20181013
  7. ALENDRONIC ACID [Concomitant]
     Active Substance: ALENDRONIC ACID
     Dosage: 70 MG, WEEKLY
     Route: 048
     Dates: start: 20120821
  8. ADENURIC [Concomitant]
     Active Substance: FEBUXOSTAT
     Dosage: 80 MG, ALTERNATE DAY
     Route: 048
     Dates: start: 20171121
  9. LORAZEPAM NORMON [Concomitant]
     Dosage: 1 MG, 1X/DAY
     Route: 048
     Dates: start: 20190315
  10. BISOPROLOL NORMON [Concomitant]
     Active Substance: BISOPROLOL FUMARATE
     Dosage: 2.5 MG, 1X/DAY
     Route: 048
     Dates: start: 20171207
  11. SIRDALUD [Concomitant]
     Active Substance: TIZANIDINE
     Dosage: 20 MG, 1X/DAY
     Route: 048
     Dates: start: 20140623
  12. HIDROFEROL [Concomitant]
     Active Substance: CALCIFEDIOL
     Dosage: 0.26 MG, Q15D (HYDROPHEROL 0,266 MG WHITE CAPSULES, 10 CAPSULES (PVC / PVD CALUMINUM BLISTER))
     Route: 048
     Dates: start: 20180613

REACTIONS (2)
  - Hyperthyroidism [Recovered/Resolved]
  - Angina pectoris [Recovered/Resolved]

NARRATIVE: CASE EVENT DATE: 20191130
